FAERS Safety Report 25060410 (Version 1)
Quarter: 2025Q1

REPORT INFORMATION
  Report Type: Spontaneous
  Country: TR (occurrence: TR)
  Receive Date: 20250310
  Receipt Date: 20250310
  Transmission Date: 20250409
  Serious: Yes (Hospitalization, Other)
  Sender: NOVARTIS
  Company Number: TR-002147023-NVSC2025TR037590

PATIENT
  Age: 50 Year
  Sex: Female

DRUGS (2)
  1. TRILEPTAL [Suspect]
     Active Substance: OXCARBAZEPINE
     Indication: Epilepsy
     Dosage: 600 MG, BID (2 X 1)
     Route: 065
  2. LAMICTAL [Concomitant]
     Active Substance: LAMOTRIGINE
     Indication: Product used for unknown indication
     Route: 065

REACTIONS (9)
  - Epilepsy [Unknown]
  - Loss of consciousness [Unknown]
  - Seizure [Unknown]
  - Syncope [Unknown]
  - Tremor [Unknown]
  - Memory impairment [Unknown]
  - Somnolence [Unknown]
  - Amnesia [Unknown]
  - Product availability issue [Unknown]
